FAERS Safety Report 10253376 (Version 2)
Quarter: 2014Q2

REPORT INFORMATION
  Report Type: Spontaneous
  Country: US (occurrence: US)
  Receive Date: 20140623
  Receipt Date: 20140623
  Transmission Date: 20141212
  Serious: No
  Sender: FDA-Public Use
  Company Number: US-SHIONOGI, INC-2014000364

PATIENT
  Age: 57 Year
  Sex: Female
  Weight: 64.85 kg

DRUGS (10)
  1. OSPHENA [Suspect]
     Indication: DYSPAREUNIA
     Dosage: UNK, QD
     Route: 065
     Dates: start: 20140404, end: 20140421
  2. MULTIVITAMIN                       /00097801/ [Concomitant]
     Indication: PRODUCT USED FOR UNKNOWN INDICATION
     Dosage: UNK
     Route: 065
  3. INDERAL [Concomitant]
     Indication: PRODUCT USED FOR UNKNOWN INDICATION
     Dosage: 80 MG, QD
     Route: 065
  4. AMBIEN [Concomitant]
     Indication: SLEEP DISORDER
     Dosage: 5 MG, PRN
     Route: 065
  5. LYSINE [Concomitant]
     Indication: PRODUCT USED FOR UNKNOWN INDICATION
     Dosage: 500 MG, 1 TAB QD
     Route: 065
  6. PROPANOLOL                         /00030001/ [Concomitant]
     Indication: PRODUCT USED FOR UNKNOWN INDICATION
     Dosage: 80 MG, PRN AT BEDTIME
     Route: 065
  7. MECLIZINE                          /00072801/ [Concomitant]
     Indication: VERTIGO
     Dosage: 25 MG, PRN
     Route: 065
  8. CALCIUM [Concomitant]
     Indication: PRODUCT USED FOR UNKNOWN INDICATION
     Dosage: 600 MG, QD
     Route: 065
  9. SLOW FE [Concomitant]
     Indication: PRODUCT USED FOR UNKNOWN INDICATION
     Dosage: 1 TAB QD
  10. FLAXSEED OIL [Concomitant]
     Indication: PRODUCT USED FOR UNKNOWN INDICATION
     Dosage: UNK QD
     Route: 065

REACTIONS (3)
  - Dysarthria [Recovered/Resolved]
  - Vaginal odour [Unknown]
  - Vaginal discharge [Unknown]
